FAERS Safety Report 11216093 (Version 1)
Quarter: 2015Q2

REPORT INFORMATION
  Report Type: Report from Study
  Country: FR (occurrence: FR)
  Receive Date: 20150624
  Receipt Date: 20150624
  Transmission Date: 20150821
  Serious: Yes (Hospitalization)
  Sender: FDA-Public Use
  Company Number: FR-GLAXOSMITHKLINE-FR2015GSK088848

PATIENT
  Age: 60 Year
  Sex: Male

DRUGS (7)
  1. KARDEGIC [Concomitant]
     Active Substance: ASPIRIN LYSINE
  2. NICOPATCH [Concomitant]
     Active Substance: NICOTINE
  3. OMEGA-3-ACID ETHYL ESTERS. [Suspect]
     Active Substance: OMEGA-3-ACID ETHYL ESTERS
     Indication: ISCHAEMIC HEART DISEASE PROPHYLAXIS
     Dosage: UNK
     Dates: end: 20070711
  4. RAMIPRIL. [Concomitant]
     Active Substance: RAMIPRIL
  5. TAHOR [Concomitant]
     Active Substance: ATORVASTATIN CALCIUM
  6. BISOPROLOL [Concomitant]
     Active Substance: BISOPROLOL
  7. PLAVIX [Concomitant]
     Active Substance: CLOPIDOGREL BISULFATE

REACTIONS (3)
  - Dyspnoea [Unknown]
  - Arteriogram coronary [Unknown]
  - Asthenia [Unknown]

NARRATIVE: CASE EVENT DATE: 20080215
